FAERS Safety Report 14209646 (Version 1)
Quarter: 2017Q4

REPORT INFORMATION
  Report Type: Spontaneous
  Country: US (occurrence: US)
  Receive Date: 20171121
  Receipt Date: 20171121
  Transmission Date: 20180321
  Serious: No
  Sender: FDA-Public Use
  Company Number: US-PFIZER INC-2017494970

PATIENT
  Age: 63 Year
  Sex: Female
  Weight: 68.4 kg

DRUGS (3)
  1. AVOPREL [Concomitant]
     Indication: HYPERTENSION
     Dosage: 150 MG, 1X/DAY
     Route: 048
  2. ESTRING [Suspect]
     Active Substance: ESTRADIOL
     Indication: MENOPAUSE
     Dosage: 2 MG, EVERY 3 MONTHS
     Dates: start: 201601
  3. LIPITOR [Concomitant]
     Active Substance: ATORVASTATIN CALCIUM
     Indication: BLOOD CHOLESTEROL INCREASED
     Dosage: 40 MG, 1X/DAY

REACTIONS (2)
  - Ear infection [Unknown]
  - Fungal infection [Not Recovered/Not Resolved]

NARRATIVE: CASE EVENT DATE: 201710
